FAERS Safety Report 9758481 (Version 1)
Quarter: 2013Q4

REPORT INFORMATION
  Report Type: Spontaneous
  Country: US (occurrence: None)
  Receive Date: 20131216
  Receipt Date: 20131216
  Transmission Date: 20140711
  Serious: No
  Sender: FDA-Public Use
  Company Number: CABO-13002398

PATIENT
  Age: 46 Year
  Sex: Female
  Weight: 85 kg

DRUGS (1)
  1. COMETRIQ [Suspect]
     Indication: MEDULLARY THYROID CANCER
     Dosage: 140 MG, QD, ORAL?80 MG, QD, ORAL

REACTIONS (9)
  - Gastrooesophageal reflux disease [None]
  - Genital rash [None]
  - Rash [None]
  - Stomatitis [None]
  - Oral fungal infection [None]
  - Glossodynia [None]
  - Swollen tongue [None]
  - Palmar-plantar erythrodysaesthesia syndrome [None]
  - Dysphonia [None]
